FAERS Safety Report 18627852 (Version 1)
Quarter: 2020Q4

REPORT INFORMATION
  Report Type: Not Available
  Country: None (occurrence: None)
  Receive Date: 20201217
  Receipt Date: 20201217
  Transmission Date: 20210114
  Serious: No
  Sender: FDA-Public Use
  Company Number: US-AKORN-158062

PATIENT
  Sex: Male

DRUGS (1)
  1. FLUTICASONE PROPIONATE NASAL SPRAY, USP [Suspect]
     Active Substance: FLUTICASONE PROPIONATE

REACTIONS (7)
  - Vomiting [None]
  - Fatigue [None]
  - Chills [None]
  - Dysphonia [None]
  - Abdominal discomfort [None]
  - Throat irritation [None]
  - Pyrexia [None]
